FAERS Safety Report 7815055-1 (Version None)
Quarter: 2011Q4

REPORT INFORMATION
  Report Type: 
  Country: None (occurrence: None)
  Receive Date: 20111014
  Receipt Date: 20110930
  Transmission Date: 20120403
  Serious: Yes (Other)
  Sender: FDA-Public Use
  Company Number: DE-ELI_LILLY_AND_COMPANY-DE201109008552

PATIENT
  Age: 72 Year
  Sex: Male

DRUGS (4)
  1. FORTEO [Suspect]
     Indication: OSTEOPOROSIS
     Dosage: UNK, QD
     Route: 058
     Dates: start: 20101223
  2. CALCIUM CARBONATE [Concomitant]
     Dosage: UNK, OTHER
  3. MORPHINE [Concomitant]
  4. ANALGESICS [Concomitant]

REACTIONS (2)
  - CARDIOVASCULAR INSUFFICIENCY [None]
  - RIB FRACTURE [None]
